FAERS Safety Report 10588110 (Version 13)
Quarter: 2015Q3

REPORT INFORMATION
  Report Type: Report from Study
  Country: US (occurrence: US)
  Receive Date: 20141117
  Receipt Date: 20150811
  Transmission Date: 20151125
  Serious: Yes (Hospitalization)
  Sender: FDA-Public Use
  Company Number: US-ACTELION-A-NJ2014-106702

PATIENT
  Age: 59 Year
  Sex: Female
  Weight: 60.5 kg

DRUGS (27)
  1. ACETAMINOPHEN. [Concomitant]
     Active Substance: ACETAMINOPHEN
     Dosage: 650 MG, PRN
  2. OMEPRAZOLE. [Concomitant]
     Active Substance: OMEPRAZOLE
     Dosage: 40 MG, DAILY FOR 12 WEEKS
  3. MACITENTAN [Suspect]
     Active Substance: MACITENTAN
     Indication: PULMONARY HYPERTENSION
     Dosage: 10 MG, QD
     Route: 048
     Dates: start: 20140805
  4. DAPSONE. [Concomitant]
     Active Substance: DAPSONE
     Dosage: 100 MG, UNK
  5. TYVASO [Suspect]
     Active Substance: TREPROSTINIL
     Indication: PULMONARY HYPERTENSION
     Dosage: 288 MCG, QD
     Route: 055
     Dates: start: 201307
  6. CARVEDILOL. [Concomitant]
     Active Substance: CARVEDILOL
     Dosage: 25 MG, BID
  7. VOLTAREN [Concomitant]
     Active Substance: DICLOFENAC SODIUM
     Dosage: 1 UNK, UNK
     Route: 061
  8. KLOR-CON [Concomitant]
     Active Substance: POTASSIUM CHLORIDE
     Dosage: 20 MEQ, UNK
  9. MULTIVITAMINS [Concomitant]
     Active Substance: VITAMINS
     Dosage: 1 UNK, UNK
  10. METOLAZONE. [Concomitant]
     Active Substance: METOLAZONE
     Dosage: 5 MG, EVERY MON, WED AND FRI
  11. PHENERGAN [Concomitant]
     Active Substance: PROMETHAZINE HYDROCHLORIDE
     Dosage: 25 MG, PRN
  12. PREMARIN [Concomitant]
     Active Substance: ESTROGENS, CONJUGATED
  13. REVATIO [Suspect]
     Active Substance: SILDENAFIL CITRATE
     Indication: PULMONARY HYPERTENSION
     Dosage: 40 MG, QD
     Route: 048
     Dates: start: 201305
  14. FUROSEMIDE. [Concomitant]
     Active Substance: FUROSEMIDE
     Dosage: 40 MG, BID
  15. LEVOTHYROXINE. [Concomitant]
     Active Substance: LEVOTHYROXINE
     Dosage: 25 MCG, QD
  16. SYMBICORT [Concomitant]
     Active Substance: BUDESONIDE\FORMOTEROL FUMARATE DIHYDRATE
     Dosage: 2 PUFF, BID
     Route: 055
  17. TRAMADOL. [Concomitant]
     Active Substance: TRAMADOL
     Dosage: 25 MG, PRN
  18. VITAMIN D2 + CALCIUM [Concomitant]
  19. CELLCEPT [Concomitant]
     Active Substance: MYCOPHENOLATE MOFETIL\MYCOPHENOLATE MOFETIL HYDROCHLORIDE
     Dosage: 750 MG, BID
  20. FERROUS SULFATE [Concomitant]
     Active Substance: FERROUS SULFATE\FERROUS SULFATE, DRIED
     Dosage: 325 MG, UNK
  21. FOSAMAX [Concomitant]
     Active Substance: ALENDRONATE SODIUM
     Dosage: 75 MG, Q1WEEK
  22. PREDNISONE. [Concomitant]
     Active Substance: PREDNISONE
     Dosage: 80 MG, BID
  23. ACETYLSALICYLIC ACID [Concomitant]
     Active Substance: ASPIRIN
     Dosage: 81 MG, UNK
  24. GABAPENTIN. [Concomitant]
     Active Substance: GABAPENTIN
     Dosage: 600 MG, BID
  25. ONDASETRON [Concomitant]
     Active Substance: ONDANSETRON
     Dosage: 4 MG, PRN
  26. SPIRIVA [Concomitant]
     Active Substance: TIOTROPIUM BROMIDE MONOHYDRATE
     Dosage: 18 MCG, QD
     Route: 055
  27. SPIRONOLACTONE. [Concomitant]
     Active Substance: SPIRONOLACTONE
     Dosage: 25 MG, UNK

REACTIONS (24)
  - Sputum abnormal [Unknown]
  - Pulmonary oedema [Unknown]
  - Arthralgia [Unknown]
  - Dyspnoea [Unknown]
  - Orthopnoea [Unknown]
  - Urinary tract infection [Unknown]
  - Acute respiratory failure [Recovered/Resolved]
  - Fluid retention [Unknown]
  - Systemic lupus erythematosus [Unknown]
  - Cardiac failure congestive [Unknown]
  - Pleural effusion [Unknown]
  - Oxygen saturation decreased [Unknown]
  - Oedema [Unknown]
  - Oedema peripheral [Unknown]
  - Joint effusion [Unknown]
  - Pneumonia [Unknown]
  - Feeling abnormal [Unknown]
  - Pyrexia [Unknown]
  - Nasopharyngitis [Unknown]
  - Pneumonia bacterial [Unknown]
  - Swelling [Unknown]
  - Condition aggravated [Recovered/Resolved]
  - Dyspnoea exertional [Unknown]
  - Dyspnoea paroxysmal nocturnal [Unknown]

NARRATIVE: CASE EVENT DATE: 20141001
